FAERS Safety Report 6254035-7 (Version None)
Quarter: 2009Q2

REPORT INFORMATION
  Report Type: 
  Country: None (occurrence: None)
  Receive Date: 20090630
  Receipt Date: 20090630
  Transmission Date: 20091009
  Serious: Yes (Other)
  Sender: FDA-Public Use
  Company Number: None

PATIENT
  Age: 25 Year
  Sex: Female
  Weight: 145.151 kg

DRUGS (1)
  1. CYMBALTA [Suspect]
     Indication: PANIC ATTACK
     Dosage: ONCE A DAY YEARS

REACTIONS (15)
  - ACTIVITIES OF DAILY LIVING IMPAIRED [None]
  - BRUXISM [None]
  - CHEST PAIN [None]
  - DEPRESSION [None]
  - DRUG INEFFECTIVE [None]
  - DRUG WITHDRAWAL SYNDROME [None]
  - DYSPNOEA [None]
  - FEAR [None]
  - HYPERHIDROSIS [None]
  - MALAISE [None]
  - NAUSEA [None]
  - PAIN IN EXTREMITY [None]
  - PARAESTHESIA [None]
  - SLEEP APNOEA SYNDROME [None]
  - TREMOR [None]
